FAERS Safety Report 4511803-7 (Version None)
Quarter: 2004Q4

REPORT INFORMATION
  Report Type: 
  Country: None (occurrence: None)
  Receive Date: 20041122
  Receipt Date: 20041109
  Transmission Date: 20050328
  Serious: Yes (Other)
  Sender: FDA-Public Use
  Company Number: 2004090414

PATIENT
  Age: 56 Year
  Sex: Female
  Weight: 68.4932 kg

DRUGS (5)
  1. ZOLOFT [Suspect]
     Indication: DEPRESSION
     Dosage: 100 MG (100 MG, 1 IN 1 D), ORAL
     Route: 048
     Dates: start: 19980101
  2. CARISOPRODOL [Concomitant]
  3. ALPRAZOLAM [Concomitant]
  4. PROMETHAZINE [Concomitant]
  5. CELECOXIB (CELECOXIB) [Concomitant]

REACTIONS (6)
  - AMNESIA [None]
  - DRUG WITHDRAWAL SYNDROME [None]
  - FEELING ABNORMAL [None]
  - GRAND MAL CONVULSION [None]
  - HEADACHE [None]
  - MOUTH HAEMORRHAGE [None]
